FAERS Safety Report 9056552 (Version 7)
Quarter: 2014Q1

REPORT INFORMATION
  Report Type: Report from Study
  Country: FR (occurrence: FR)
  Receive Date: 20130204
  Receipt Date: 20140116
  Transmission Date: 20141002
  Serious: Yes (Hospitalization)
  Sender: FDA-Public Use
  Company Number: FR-GLAXOSMITHKLINE-B0864133A

PATIENT
  Age: 57 Year
  Sex: Female
  Weight: 56 kg

DRUGS (2)
  1. TOPOTECAN HYDROCHLORIDE [Suspect]
     Indication: OVARIAN CANCER
     Dosage: 1.25MGM2 PER DAY
     Route: 042
     Dates: start: 20130107
  2. PERTUZUMAB [Suspect]
     Indication: OVARIAN CANCER
     Route: 042
     Dates: start: 20130107

REACTIONS (5)
  - Decreased appetite [Recovered/Resolved]
  - Weight decreased [Not Recovered/Not Resolved]
  - General physical health deterioration [Not Recovered/Not Resolved]
  - Vomiting [Recovered/Resolved]
  - Abdominal pain [Recovered/Resolved]
